FAERS Safety Report 4501133-1 (Version None)
Quarter: 2004Q4

REPORT INFORMATION
  Report Type: 
  Country: None (occurrence: None)
  Receive Date: 20041110
  Receipt Date: 20041026
  Transmission Date: 20050328
  Serious: Yes (Hospitalization)
  Sender: FDA-Public Use
  Company Number: 201371

PATIENT
  Age: 52 Year
  Sex: Female

DRUGS (11)
  1. AVONEX [Suspect]
     Indication: MULTIPLE SCLEROSIS
     Dosage: 30 MCG QW IM
     Route: 030
     Dates: start: 19960101
  2. GEODON [Concomitant]
  3. SINEMET [Concomitant]
  4. CELEBREX [Concomitant]
  5. XANAX [Concomitant]
  6. LAMICTAL [Concomitant]
  7. LACTULOSE [Concomitant]
  8. AVAPRO [Concomitant]
  9. BACLOFEN [Concomitant]
  10. DURAGESIC [Concomitant]
  11. CATAPRES [Concomitant]

REACTIONS (3)
  - DEPRESSION [None]
  - ENCEPHALOPATHY [None]
  - OVERDOSE [None]
